FAERS Safety Report 4488101-3 (Version None)
Quarter: 2004Q4

REPORT INFORMATION
  Report Type: 
  Country: None (occurrence: None)
  Receive Date: 20041028
  Receipt Date: 20041025
  Transmission Date: 20050328
  Serious: Yes (Hospitalization)
  Sender: FDA-Public Use
  Company Number: DE-GLAXOSMITHKLINE-D0045023A

PATIENT
  Age: 65 Year
  Sex: Male

DRUGS (5)
  1. QUILONUM RETARD [Suspect]
     Indication: DEPRESSION
     Dosage: 675MG PER DAY
     Route: 048
     Dates: start: 20020521, end: 20021117
  2. CIPRAMIL [Suspect]
     Dosage: 80MG PER DAY
     Route: 048
     Dates: start: 20020401, end: 20021105
  3. ZYPREXA [Suspect]
     Dosage: 2.5MG PER DAY
     Route: 048
  4. DOCITON [Concomitant]
     Dosage: 10MG PER DAY
     Route: 048
  5. EUTHYROX [Concomitant]
     Indication: THYROID DISORDER
     Dosage: 100UG PER DAY
     Route: 065

REACTIONS (2)
  - DRUG INTERACTION [None]
  - PARKINSONISM [None]
